FAERS Safety Report 22186607 (Version 1)
Quarter: 2023Q2

REPORT INFORMATION
  Report Type: Spontaneous
  Country: CN (occurrence: CN)
  Receive Date: 20230407
  Receipt Date: 20230407
  Transmission Date: 20230722
  Serious: Yes (Life-Threatening, Hospitalization, Other)
  Sender: FDA-Public Use
  Company Number: None

PATIENT
  Age: 50 Year
  Sex: Female
  Weight: 57.4 kg

DRUGS (6)
  1. CYCLOPHOSPHAMIDE [Suspect]
     Active Substance: CYCLOPHOSPHAMIDE
     Indication: Breast cancer female
     Dosage: 900 MG, QD (DILUTED WITH DOXORUBICIN HYDROCHLORIDE LIPOSOME 50 MG, FOURTH CYCLE OF CHEMOTHERAPY)
     Route: 041
     Dates: start: 20230309, end: 20230309
  2. CYCLOPHOSPHAMIDE [Suspect]
     Active Substance: CYCLOPHOSPHAMIDE
     Indication: Chemotherapy
  3. DOXORUBICIN HYDROCHLORIDE [Suspect]
     Active Substance: DOXORUBICIN HYDROCHLORIDE
     Indication: Breast cancer female
     Dosage: 50 MG, QD (DILUTED WITH 250 ML GLUCOSE, FOURTH CYCLE OF CHEMOTHERAPY)
     Route: 041
     Dates: start: 20230309, end: 20230309
  4. DOXORUBICIN HYDROCHLORIDE [Suspect]
     Active Substance: DOXORUBICIN HYDROCHLORIDE
     Indication: Chemotherapy
  5. SODIUM CHLORIDE [Suspect]
     Active Substance: SODIUM CHLORIDE
     Indication: Medication dilution
     Dosage: 50 ML, QD (USED TO DILUTE CYCLOPHOSPHAMIDE 900 MG, FOURTH CYCLE OF CHEMOTHERAPY)
     Route: 041
     Dates: start: 20230309, end: 20230309
  6. DEXTROSE [Suspect]
     Active Substance: DEXTROSE\DEXTROSE MONOHYDRATE
     Indication: Medication dilution
     Dosage: 250 ML, QD (USED TO DILUTE DOXORUBICIN HYDROCHLORIDE 50 MG, FOURTH CYCLE OF CHEMOTHERAPY)
     Route: 041
     Dates: start: 20230309, end: 20230309

REACTIONS (5)
  - Breast cancer [Unknown]
  - White blood cell count decreased [Recovering/Resolving]
  - Haemoglobin decreased [Recovering/Resolving]
  - Platelet count decreased [Recovering/Resolving]
  - Myelosuppression [Recovering/Resolving]

NARRATIVE: CASE EVENT DATE: 20230317
